FAERS Safety Report 10339435 (Version 1)
Quarter: 2014Q3

REPORT INFORMATION
  Report Type: Spontaneous
  Country: US (occurrence: US)
  Receive Date: 20140724
  Receipt Date: 20140724
  Transmission Date: 20150326
  Serious: No
  Sender: FDA-Public Use
  Company Number: US-BAYER-2014-110264

PATIENT
  Age: 84 Year
  Sex: Female

DRUGS (1)
  1. ULTRAVIST [Suspect]
     Active Substance: IOPROMIDE
     Indication: LIVER FUNCTION TEST ABNORMAL
     Dosage: 100 ML, ONCE
     Route: 042
     Dates: start: 20140722, end: 20140722

REACTIONS (2)
  - Throat irritation [Recovered/Resolved]
  - Ear pruritus [Recovered/Resolved]

NARRATIVE: CASE EVENT DATE: 20140722
